FAERS Safety Report 22534711 (Version 1)
Quarter: 2023Q2

REPORT INFORMATION
  Report Type: Spontaneous
  Country: DE (occurrence: DE)
  Receive Date: 20230608
  Receipt Date: 20230608
  Transmission Date: 20230722
  Serious: Yes (Hospitalization)
  Sender: FDA-Public Use
  Company Number: DE-drreddys-LIT/GER/23/0166412

PATIENT
  Age: 11 Year
  Sex: Male

DRUGS (8)
  1. PREGABALIN [Suspect]
     Active Substance: PREGABALIN
     Indication: Dystonia
  2. LAMOTRIGINE [Suspect]
     Active Substance: LAMOTRIGINE
     Indication: Seizure
  3. VALPROIC ACID [Suspect]
     Active Substance: VALPROIC ACID
     Indication: Seizure
  4. TETRABENAZINE [Suspect]
     Active Substance: TETRABENAZINE
     Indication: Dystonia
  5. CANNABIDIOL [Suspect]
     Active Substance: CANNABIDIOL
     Indication: Seizure
  6. ALBUTEROL [Suspect]
     Active Substance: ALBUTEROL
     Indication: Product used for unknown indication
  7. FLUTICASONE PROPIONATE [Suspect]
     Active Substance: FLUTICASONE PROPIONATE
     Indication: Product used for unknown indication
  8. SODIUM CHLORIDE [Suspect]
     Active Substance: SODIUM CHLORIDE
     Indication: Product used for unknown indication

REACTIONS (2)
  - COVID-19 pneumonia [Unknown]
  - Pseudomonas infection [Unknown]
